FAERS Safety Report 6576892-7 (Version None)
Quarter: 2010Q1

REPORT INFORMATION
  Report Type: 
  Country: None (occurrence: None)
  Receive Date: 20100210
  Receipt Date: 20100205
  Transmission Date: 20100710
  Serious: Yes (Death)
  Sender: FDA-Public Use
  Company Number: B0585423A

PATIENT
  Age: 47 Year
  Sex: Male
  Weight: 63 kg

DRUGS (8)
  1. ABACAVIR [Suspect]
     Indication: HIV INFECTION
     Route: 048
     Dates: start: 19980814
  2. EFAVIRENZ [Concomitant]
     Indication: HIV INFECTION
     Route: 048
     Dates: start: 19980814
  3. ATAZANAVIR [Concomitant]
     Indication: HIV INFECTION
     Route: 048
     Dates: start: 20070803
  4. RITONAVIR [Concomitant]
     Indication: HIV INFECTION
     Route: 048
     Dates: start: 20070803
  5. ASPIRIN [Concomitant]
     Dosage: 75MG PER DAY
  6. ATENOLOL [Concomitant]
     Dosage: 25MG PER DAY
  7. PRAVASTATIN [Concomitant]
     Dosage: 40MG PER DAY
  8. ACYCLOVIR [Concomitant]
     Dosage: 800MG PER DAY

REACTIONS (1)
  - MYOCARDIAL INFARCTION [None]
